FAERS Safety Report 13949811 (Version 1)
Quarter: 2017Q3

REPORT INFORMATION
  Report Type: Spontaneous
  Country: IE (occurrence: IE)
  Receive Date: 20170908
  Receipt Date: 20170908
  Transmission Date: 20171128
  Serious: Yes (Hospitalization)
  Sender: FDA-Public Use
  Company Number: IE-TEVA-802886ACC

PATIENT
  Age: 5 Year
  Sex: Female
  Weight: 17.1 kg

DRUGS (10)
  1. ONDANSETRON (G) [Concomitant]
     Indication: NAUSEA
     Dosage: 12 MILLIGRAM DAILY;
     Dates: start: 20170823, end: 20170826
  2. MST (G) [Concomitant]
     Indication: ANALGESIC THERAPY
     Dosage: 60 MILLIGRAM DAILY;
     Dates: start: 20170721, end: 20170815
  3. COLECALCIFEROL (G) [Concomitant]
     Dosage: 600 IU (INTERNATIONAL UNIT) DAILY;
  4. PARACETAMOL [Concomitant]
     Active Substance: ACETAMINOPHEN
     Indication: ANALGESIC THERAPY
     Dosage: 60 MILLIGRAM DAILY;
     Dates: start: 20170720, end: 20170815
  5. AUGMENTIN DUO [Concomitant]
     Active Substance: AMOXICILLIN\CLAVULANATE POTASSIUM
     Indication: INFECTION
     Dates: start: 20170719, end: 20170725
  6. ORAMORPH [Concomitant]
     Active Substance: MORPHINE SULFATE
     Indication: BREAKTHROUGH PAIN
     Dosage: 10 MILLIGRAM DAILY;
  7. CYCLIZINE (GENERIC) [Concomitant]
     Indication: NAUSEA
     Dosage: 37.5 MILLIGRAM DAILY;
     Dates: start: 20170820, end: 20170826
  8. ONDANSETRON (G) [Concomitant]
     Indication: VOMITING
  9. MOVICOL PAEDIATRIC PLAIN [Concomitant]
     Indication: CONSTIPATION
     Dates: start: 20170720, end: 20170826
  10. IRINOTECAN [Suspect]
     Active Substance: IRINOTECAN
     Indication: NEUROBLASTOMA
     Dosage: 8.5714 MILLIGRAM DAILY;
     Route: 041
     Dates: start: 20170628, end: 20170724

REACTIONS (5)
  - Hypertension [Recovered/Resolved]
  - Flushing [Recovered/Resolved]
  - Abdominal pain [Recovered/Resolved]
  - Hyperhidrosis [Recovered/Resolved]
  - Tachycardia [Recovered/Resolved]

NARRATIVE: CASE EVENT DATE: 20170724
